FAERS Safety Report 17351410 (Version 3)
Quarter: 2023Q2

REPORT INFORMATION
  Report Type: Spontaneous
  Country: GR (occurrence: GR)
  Receive Date: 20200130
  Receipt Date: 20230418
  Transmission Date: 20230721
  Serious: Yes (Hospitalization, Other)
  Sender: FDA-Public Use
  Company Number: GR-SEATTLE GENETICS-2020SGN00041

PATIENT
  Age: 57 Year
  Sex: Female

DRUGS (8)
  1. DEXAMETHASONE [Suspect]
     Active Substance: DEXAMETHASONE
     Indication: Hodgkin^s disease
     Dosage: DHAP REGIMEN (DEXAMETHASONE, CISPLATIN, AND CYTARABINE)
     Route: 065
  2. DEXAMETHASONE [Suspect]
     Active Substance: DEXAMETHASONE
     Dosage: DICE (DEXAMETHASONE, IFOSFAMIDE, CISPLATIN, AND ETOPOSIDE) REGIMEN
     Route: 065
  3. CISPLATIN [Suspect]
     Active Substance: CISPLATIN
     Indication: Hodgkin^s disease
     Dosage: DHAP REGIMEN (DEXAMETHASONE, CISPLATIN, AND CYTARABINE)
     Route: 065
  4. CISPLATIN [Suspect]
     Active Substance: CISPLATIN
     Dosage: DICE (DEXAMETHASONE, IFOSFAMIDE, CISPLATIN, AND ETOPOSIDE) REGIMEN
     Route: 065
  5. ETOPOSIDE [Suspect]
     Active Substance: ETOPOSIDE
     Indication: Hodgkin^s disease
     Dosage: DICE (DEXAMETHASONE, IFOSFAMIDE, CISPLATIN, AND ETOPOSIDE) REGIMEN
     Route: 065
  6. IFOSFAMIDE [Suspect]
     Active Substance: IFOSFAMIDE
     Indication: Hodgkin^s disease
     Dosage: DICE (DEXAMETHASONE, IFOSFAMIDE, CISPLATIN, AND ETOPOSIDE) REGIMEN
     Route: 065
  7. CYTARABINE [Suspect]
     Active Substance: CYTARABINE
     Indication: Hodgkin^s disease
     Dosage: DHAP REGIMEN (DEXAMETHASONE, CISPLATIN, AND CYTARABINE)
     Route: 065
  8. BRENTUXIMAB VEDOTIN [Concomitant]
     Active Substance: BRENTUXIMAB VEDOTIN
     Indication: Hodgkin^s disease
     Route: 065

REACTIONS (3)
  - Haematotoxicity [Unknown]
  - Therapy non-responder [Unknown]
  - Toxicity to various agents [Unknown]
